FAERS Safety Report 9068714 (Version 1)
Quarter: 2013Q1

REPORT INFORMATION
  Report Type: Spontaneous
  Country: US (occurrence: None)
  Receive Date: 20130212
  Receipt Date: 20130212
  Transmission Date: 20140127
  Serious: Yes (Hospitalization)
  Sender: FDA-Public Use
  Company Number: None

PATIENT
  Age: 72 Year
  Sex: Male
  Weight: 74.84 kg

DRUGS (1)
  1. PROMETHAZINE [Suspect]
     Indication: NAUSEA
     Dosage: SHOT  1?PILLS NIGHT + MORNING
     Dates: start: 20130111

REACTIONS (6)
  - Agitation [None]
  - Confusional state [None]
  - Speech disorder [None]
  - Abnormal behaviour [None]
  - Activities of daily living impaired [None]
  - Contraindication to medical treatment [None]
